FAERS Safety Report 7583204-9 (Version None)
Quarter: 2011Q2

REPORT INFORMATION
  Report Type: 
  Country: None (occurrence: None)
  Receive Date: 20110630
  Receipt Date: 20110623
  Transmission Date: 20111010
  Serious: Yes (Hospitalization)
  Sender: FDA-Public Use
  Company Number: US-SANOFI-AVENTIS-2011SA040460

PATIENT
  Age: 60 Year
  Sex: Female

DRUGS (2)
  1. LANTUS [Suspect]
     Indication: DIABETES MELLITUS
     Dosage: DOSE:6 UNIT(S)
     Route: 058
  2. SOLOSTAR [Suspect]
     Indication: DIABETES MELLITUS

REACTIONS (3)
  - GALLBLADDER DISORDER [None]
  - CONVULSION [None]
  - INFECTION [None]
